FAERS Safety Report 5040840-1 (Version None)
Quarter: 2006Q3

REPORT INFORMATION
  Report Type: 
  Country: None (occurrence: None)
  Receive Date: 20060703
  Receipt Date: 20060525
  Transmission Date: 20061208
  Serious: Yes (Life-Threatening)
  Sender: FDA-Public Use
  Company Number: US-BRISTOL-MYERS SQUIBB COMPANY-13390422

PATIENT
  Age: 59 Year
  Sex: Female

DRUGS (7)
  1. ERBITUX [Suspect]
     Indication: SQUAMOUS CELL CARCINOMA
     Route: 042
     Dates: start: 20060505, end: 20060505
  2. BENADRYL [Concomitant]
     Indication: PREMEDICATION
     Dates: start: 20060505, end: 20060505
  3. DURAGESIC-100 [Concomitant]
  4. LORTAB [Concomitant]
  5. ZOFRAN [Concomitant]
     Indication: PREMEDICATION
     Dates: start: 20060505, end: 20060505
  6. RADIATION THERAPY [Concomitant]
  7. COMPAZINE [Concomitant]

REACTIONS (1)
  - ANAPHYLACTIC REACTION [None]
